FAERS Safety Report 11451564 (Version 1)
Quarter: 2015Q3

REPORT INFORMATION
  Report Type: Spontaneous
  Country: US (occurrence: US)
  Receive Date: 20150903
  Receipt Date: 20150903
  Transmission Date: 20151125
  Serious: No
  Sender: FDA-Public Use
  Company Number: US-ROCHE-1050651

PATIENT
  Sex: Female

DRUGS (2)
  1. PEGASYS [Suspect]
     Active Substance: PEGINTERFERON ALFA-2A
     Indication: HEPATITIS C
     Route: 065
     Dates: start: 20100806, end: 20101007
  2. RIBAVIRIN. [Suspect]
     Active Substance: RIBAVIRIN
     Indication: HEPATITIS C
     Route: 065
     Dates: start: 20100806, end: 20101007

REACTIONS (7)
  - Red blood cell abnormality [Unknown]
  - Unevaluable event [Unknown]
  - White blood cell disorder [Unknown]
  - Abdominal distension [Unknown]
  - Vomiting [Unknown]
  - Memory impairment [Unknown]
  - Weight decreased [Unknown]
